FAERS Safety Report 7977335-9 (Version None)
Quarter: 2011Q4

REPORT INFORMATION
  Report Type: 
  Country: None (occurrence: None)
  Receive Date: 20111213
  Receipt Date: 20111102
  Transmission Date: 20120403
  Serious: Yes (Other)
  Sender: FDA-Public Use
  Company Number: US-AMGEN-USASP2011053557

PATIENT
  Age: 53 Year
  Sex: Female

DRUGS (1)
  1. ENBREL [Suspect]
     Indication: PSORIASIS
     Dosage: 50 MG, QWK
     Route: 058
     Dates: start: 20041119, end: 20111002

REACTIONS (8)
  - OROPHARYNGEAL PAIN [None]
  - GASTROINTESTINAL PAIN [None]
  - HYPOAESTHESIA [None]
  - CLOSTRIDIAL INFECTION [None]
  - FATIGUE [None]
  - PSORIASIS [None]
  - GASTROENTERITIS SALMONELLA [None]
  - DIARRHOEA [None]
